FAERS Safety Report 5387608-4 (Version None)
Quarter: 2007Q3

REPORT INFORMATION
  Report Type: 
  Country: None (occurrence: None)
  Receive Date: 20070711
  Receipt Date: 20070711
  Transmission Date: 20080115
  Serious: Yes (Hospitalization)
  Sender: FDA-Public Use
  Company Number: None

PATIENT
  Sex: Male
  Weight: 68.1 kg

DRUGS (1)
  1. MYLOTARG [Suspect]
     Dosage: 5 MG

REACTIONS (1)
  - FEBRILE NEUTROPENIA [None]
